FAERS Safety Report 10511961 (Version 8)
Quarter: 2016Q2

REPORT INFORMATION
  Report Type: Spontaneous
  Country: BR (occurrence: BR)
  Receive Date: 20141010
  Receipt Date: 20160505
  Transmission Date: 20160815
  Serious: Yes (Hospitalization, Other)
  Sender: FDA-Public Use
  Company Number: BR-PFIZER INC-2014274319

PATIENT
  Age: 59 Year
  Sex: Male
  Weight: 67 kg

DRUGS (8)
  1. TYLEX [Concomitant]
     Active Substance: ACETAMINOPHEN\CODEINE PHOSPHATE
     Indication: PAIN
     Dosage: UNK
  2. SUTENT [Suspect]
     Active Substance: SUNITINIB MALATE
     Dosage: 50 MG CYCLE (2 WEEKS ON/1 WEEK OFF)
     Route: 048
     Dates: end: 201602
  3. MESALAZINE [Concomitant]
     Active Substance: MESALAMINE
     Indication: PAIN
     Dosage: UNK
  4. MEFENAMIC-ACID [Concomitant]
     Active Substance: MEFENAMIC ACID
     Indication: ANALGESIC THERAPY
     Dosage: UNK
  5. DIPYRONE [Concomitant]
     Active Substance: DIPYRONE
     Indication: PAIN
     Dosage: UNK
  6. SUTENT [Suspect]
     Active Substance: SUNITINIB MALATE
     Indication: METASTATIC RENAL CELL CARCINOMA
     Dosage: 50 MG CYCLIC (4 WEEKS ON/2 WEEKS OFF)
     Route: 048
     Dates: start: 20130207
  7. METAMIZOLE [Concomitant]
     Active Substance: METAMIZOLE
     Indication: PAIN
     Dosage: UNK
  8. BUSCOPAN COMPOSTO [Concomitant]
     Indication: PAIN
     Dosage: UNK

REACTIONS (22)
  - Aortic aneurysm [Not Recovered/Not Resolved]
  - Inflammation [Unknown]
  - Vomiting [Not Recovered/Not Resolved]
  - Malaise [Unknown]
  - Abdominal pain [Not Recovered/Not Resolved]
  - Abnormal faeces [Not Recovered/Not Resolved]
  - Metastatic renal cell carcinoma [Not Recovered/Not Resolved]
  - Skin disorder [Unknown]
  - Decreased appetite [Not Recovered/Not Resolved]
  - Shoulder deformity [Not Recovered/Not Resolved]
  - Retching [Not Recovered/Not Resolved]
  - Back pain [Not Recovered/Not Resolved]
  - Peripheral artery aneurysm [Not Recovered/Not Resolved]
  - Colitis [Not Recovered/Not Resolved]
  - Dengue fever [Unknown]
  - Deafness [Unknown]
  - Arthralgia [Not Recovered/Not Resolved]
  - Renal disorder [Not Recovered/Not Resolved]
  - Pain [Not Recovered/Not Resolved]
  - Bone pain [Not Recovered/Not Resolved]
  - Disease progression [Not Recovered/Not Resolved]
  - Pruritus [Not Recovered/Not Resolved]

NARRATIVE: CASE EVENT DATE: 201102
